FAERS Safety Report 22191184 (Version 1)
Quarter: 2023Q2

REPORT INFORMATION
  Report Type: Spontaneous
  Country: US (occurrence: None)
  Receive Date: 20230407
  Receipt Date: 20230407
  Transmission Date: 20230721
  Serious: No
  Sender: FDA-Public Use
  Company Number: None

PATIENT
  Age: 68 Year
  Sex: Female
  Weight: 73.48 kg

DRUGS (13)
  1. EVEROLIMUS [Suspect]
     Active Substance: EVEROLIMUS
     Indication: Breast cancer female
     Dosage: FREQUENCY : DAILY;?
     Route: 048
     Dates: start: 202301
  2. CACLIUM+D [Concomitant]
  3. CAPECITABINE [Concomitant]
     Active Substance: CAPECITABINE
  4. FASLODEX [Concomitant]
     Active Substance: FULVESTRANT
  5. FOLIC ACID [Concomitant]
     Active Substance: FOLIC ACID
  6. HYZAAR [Concomitant]
     Active Substance: HYDROCHLOROTHIAZIDE\LOSARTAN POTASSIUM
  7. IBRANCE [Concomitant]
     Active Substance: PALBOCICLIB
  8. LEXAPRO [Concomitant]
  9. LIPITOR [Concomitant]
     Active Substance: ATORVASTATIN CALCIUM
  10. OXYCODONE [Concomitant]
  11. PRILOSEC [Concomitant]
     Active Substance: OMEPRAZOLE MAGNESIUM
  12. TRELEGY ELLIPTA [Concomitant]
     Active Substance: FLUTICASONE FUROATE\UMECLIDINIUM BROMIDE\VILANTEROL TRIFENATATE
  13. TYLENOL [Concomitant]

REACTIONS (2)
  - Drug ineffective [None]
  - Therapy cessation [None]
